FAERS Safety Report 4650766-0 (Version None)
Quarter: 2005Q2

REPORT INFORMATION
  Report Type: 
  Country: None (occurrence: None)
  Receive Date: 20050503
  Receipt Date: 20050128
  Transmission Date: 20051028
  Serious: Yes (Death)
  Sender: FDA-Public Use
  Company Number: 200511250GDDC

PATIENT
  Age: 46 Year
  Sex: Female

DRUGS (2)
  1. LANTUS [Suspect]
     Indication: DIABETES MELLITUS
  2. OPTIPEN (INSULIN PUMP) [Suspect]

REACTIONS (3)
  - ARRHYTHMIA [None]
  - DIABETIC NEUROPATHY [None]
  - SUDDEN DEATH [None]
